FAERS Safety Report 7146059 (Version 4)
Quarter: 2012Q4

REPORT INFORMATION
  Report Type: 
  Country: CA (occurrence: CA)
  Receive Date: 20091011
  Receipt Date: 20121109
  Transmission Date: 20130627
  Serious: Yes (Death, Hospitalization)
  Sender: FDA-Public Use
  Company Number: PHHY2008CA14051

PATIENT
  Sex: Male
  Weight: 64.4 kg

DRUGS (1)
  1. SANDOSTATIN LAR [Suspect]
     Indication: DYSPHAGIA
     Dosage: 20 mg, every 4 weeks
     Route: 030
     Dates: start: 20051107, end: 20100118

REACTIONS (15)
  - Death [Fatal]
  - Peritonitis [Unknown]
  - Abdominal distension [Unknown]
  - Decubitus ulcer [Unknown]
  - Secretion discharge [Unknown]
  - Urinary incontinence [Unknown]
  - Blood pressure decreased [Unknown]
  - Pneumonia aspiration [Unknown]
  - Dyspnoea [Not Recovered/Not Resolved]
  - Pulmonary oedema [Unknown]
  - Fluid retention [Unknown]
  - Weight increased [Unknown]
  - Blood glucose increased [Unknown]
  - Flatulence [Unknown]
  - Diarrhoea [Unknown]
